FAERS Safety Report 15897763 (Version 4)
Quarter: 2019Q1

REPORT INFORMATION
  Report Type: Spontaneous
  Country: PL (occurrence: PL)
  Receive Date: 20190201
  Receipt Date: 20190308
  Transmission Date: 20190417
  Serious: Yes (Other)
  Sender: FDA-Public Use
  Company Number: PL-MYLANLABS-2019M1006235

PATIENT
  Age: 65 Year
  Sex: Female

DRUGS (31)
  1. SERTRALINE [Interacting]
     Active Substance: SERTRALINE HYDROCHLORIDE
     Indication: DEPRESSION
     Dosage: 100 MILLIGRAM, QD, (100 MG IN THE MORNING)
     Route: 065
  2. ACETYLSALICYLIC ACID [Interacting]
     Active Substance: ASPIRIN
     Indication: HYPERTENSION
     Dosage: 75 MILLIGRAM, QD
     Route: 065
  3. LEVOMEPROMAZINE [Interacting]
     Active Substance: LEVOMEPROMAZINE
     Indication: DEPRESSION
     Dosage: 50 MILLIGRAM, HS, (50 MG AT BEDTIME)
     Route: 065
  4. PROPAFENONE. [Interacting]
     Active Substance: PROPAFENONE
     Indication: HYPERLIPIDAEMIA
  5. LANSOPRAZOLE. [Interacting]
     Active Substance: LANSOPRAZOLE
     Indication: ARRHYTHMIA SUPRAVENTRICULAR
     Dosage: 15 MILLIGRAM, QD, (15 MG / D)
     Route: 065
  6. ATORVASTATIN [Suspect]
     Active Substance: ATORVASTATIN
     Indication: HYPERLIPIDAEMIA
     Dosage: 20 MILLIGRAM, QD
  7. AMLODIPINE [Interacting]
     Active Substance: AMLODIPINE BESYLATE
     Indication: HYPERLIPIDAEMIA
  8. PROPAFENONE. [Interacting]
     Active Substance: PROPAFENONE
     Indication: ARRHYTHMIA
     Dosage: 450 MILLIGRAM, QD
     Route: 065
  9. LANSOPRAZOLE. [Interacting]
     Active Substance: LANSOPRAZOLE
     Indication: HYPERLIPIDAEMIA
     Dosage: 15 MILLIGRAM, QD, (15 MG / D)
     Route: 065
  10. CANDESARTAN/HYDROCHLOROTHIAZIDE [Interacting]
     Active Substance: CANDESARTAN CILEXETIL\HYDROCHLOROTHIAZIDE
     Indication: HYPERTENSION
     Dosage: 16 MG + 12.5 MG DAILY
     Route: 065
  11. ACETYLSALICYLIC ACID [Interacting]
     Active Substance: ASPIRIN
     Indication: HYPERLIPIDAEMIA
     Dosage: UNK
  12. SULPIRIDE [Interacting]
     Active Substance: SULPIRIDE
     Indication: DEPRESSION
     Dosage: 150 MILLIGRAM, QD
  13. SULPIRIDE [Interacting]
     Active Substance: SULPIRIDE
     Dosage: 50 MILLIGRAM, QD
     Route: 065
  14. VINPOCETINE [Interacting]
     Active Substance: VINPOCETINE
     Indication: DEPRESSION
     Dosage: 15 MILLIGRAM, QD, (15 MG / D)
     Route: 065
  15. ENALAPRIL/HYDROCHLOROTHIAZIDE [Interacting]
     Active Substance: ENALAPRIL MALEATE\HYDROCHLOROTHIAZIDE
     Indication: HYPERTENSION
     Dosage: 12.5 MILLIGRAM, QD, (12.5 MG, 1X/DAY (HYDROCHLOROTHIAZIDE))
  16. PROPAFENONE. [Interacting]
     Active Substance: PROPAFENONE
     Indication: ARRHYTHMIA SUPRAVENTRICULAR
  17. LANSOPRAZOLE. [Interacting]
     Active Substance: LANSOPRAZOLE
     Indication: HYPERTENSION
     Dosage: UNK
  18. LAMOTRIGINE. [Interacting]
     Active Substance: LAMOTRIGINE
     Indication: DEPRESSION
     Dosage: 150 MILLIGRAM, QD, (150 MG / D)
     Route: 065
  19. ACETYLSALICYLIC ACID [Interacting]
     Active Substance: ASPIRIN
     Indication: ARRHYTHMIA
     Dosage: 75 MILLIGRAM, QD
     Route: 065
  20. PERAZINE DIMALONATE [Interacting]
     Active Substance: PERAZINE DIMALONATE
     Indication: DEPRESSION
     Dosage: 75 MILLIGRAM, QD, (75 MG / D)
     Route: 065
  21. ENALAPRIL/HYDROCHLOROTHIAZIDE [Interacting]
     Active Substance: ENALAPRIL MALEATE\HYDROCHLOROTHIAZIDE
     Indication: ARRHYTHMIA SUPRAVENTRICULAR
     Dosage: 16 MILLIGRAM, QD, (16 MG, 1X/DAY (ENALAPRIL)
     Route: 065
  22. AMLODIPINE [Interacting]
     Active Substance: AMLODIPINE BESYLATE
     Indication: HYPERTENSION
     Dosage: 5 MILLIGRAM, QD, (5 MG / D)
  23. AMLODIPINE [Interacting]
     Active Substance: AMLODIPINE BESYLATE
     Indication: ARRHYTHMIA SUPRAVENTRICULAR
  24. ENALAPRIL/HYDROCHLOROTHIAZIDE [Interacting]
     Active Substance: ENALAPRIL MALEATE\HYDROCHLOROTHIAZIDE
     Indication: HYPERLIPIDAEMIA
     Dosage: UNK
  25. AMITRIPTYLINE [Interacting]
     Active Substance: AMITRIPTYLINE
     Indication: DEPRESSION
     Dosage: 225 MILLIGRAM, QD, (225 MG / D)
     Route: 065
  26. ACETYLSALICYLIC ACID [Interacting]
     Active Substance: ASPIRIN
     Indication: ARRHYTHMIA SUPRAVENTRICULAR
  27. SULPIRIDE [Interacting]
     Active Substance: SULPIRIDE
     Dosage: 10 MILLIGRAM, QD
     Route: 065
  28. SULPIRIDE ADAMANTANECARBOXYLATE [Suspect]
     Active Substance: SULPIRIDE ADAMANTANECARBOXYLATE
     Indication: DEPRESSION
     Dosage: 150 MILLIGRAM, QD
  29. ATORVASTATIN [Interacting]
     Active Substance: ATORVASTATIN
     Indication: ARRHYTHMIA SUPRAVENTRICULAR
     Dosage: UNK
  30. PROPAFENONE. [Interacting]
     Active Substance: PROPAFENONE
     Indication: HYPERTENSION
     Dosage: 150 MILLIGRAM, QD
  31. BUSPIRONE [Interacting]
     Active Substance: BUSPIRONE HYDROCHLORIDE
     Indication: DEPRESSION
     Dosage: 10 MILLIGRAM, QD
     Route: 065

REACTIONS (26)
  - Somnolence [Recovering/Resolving]
  - Bradykinesia [Recovered/Resolved]
  - Psychomotor retardation [Unknown]
  - Disturbance in attention [Recovering/Resolving]
  - Drug interaction [Unknown]
  - Fatigue [Recovering/Resolving]
  - Amnesia [Recovering/Resolving]
  - Sleep deficit [Recovered/Resolved]
  - Overweight [Unknown]
  - Flat affect [Recovering/Resolving]
  - Anhedonia [Recovering/Resolving]
  - Anxiety [Unknown]
  - Nervous system disorder [Unknown]
  - Drug ineffective [Unknown]
  - Dizziness [Recovered/Resolved]
  - Balance disorder [Recovered/Resolved]
  - Cognitive disorder [Recovered/Resolved]
  - Depression [Unknown]
  - Depressed mood [Recovering/Resolving]
  - Insomnia [Recovering/Resolving]
  - Emotional disorder [Recovering/Resolving]
  - Fall [Recovered/Resolved]
  - Tension [Recovering/Resolving]
  - Extrapyramidal disorder [Recovered/Resolved]
  - Sleep disorder [Recovering/Resolving]
  - Mental disorder [Recovering/Resolving]
